FAERS Safety Report 4996300-7 (Version None)
Quarter: 2006Q2

REPORT INFORMATION
  Report Type: 
  Country: None (occurrence: None)
  Receive Date: 20060505
  Receipt Date: 20060427
  Transmission Date: 20061013
  Serious: Yes (Hospitalization, Other)
  Sender: FDA-Public Use
  Company Number: 2005-02-0958

PATIENT
  Age: 64 Year
  Sex: Female
  Weight: 49 kg

DRUGS (8)
  1. REBETOL [Suspect]
     Indication: HEPATITIS C
     Dosage: 600 MG QD ORAL
     Route: 048
     Dates: start: 20040927, end: 20050201
  2. INTRON A [Suspect]
     Indication: HEPATITIS C
     Dosage: 6 MU 6/W-TIW* INTRAMUSCULAR
     Route: 030
     Dates: start: 20040927, end: 20041010
  3. INTRON A [Suspect]
     Indication: HEPATITIS C
     Dosage: 6 MU 6/W-TIW* INTRAMUSCULAR
     Route: 030
     Dates: start: 20040927, end: 20050128
  4. INTRON A [Suspect]
     Indication: HEPATITIS C
     Dosage: 6 MU 6/W-TIW* INTRAMUSCULAR
     Route: 030
     Dates: start: 20041011, end: 20050128
  5. LOXONIN TABLETS [Concomitant]
  6. MARZULENE S ORAL POWDER [Concomitant]
  7. COLD/COUGH PREPARATION (NOS) ORAL POWDER [Concomitant]
  8. KETOPROFEN [Concomitant]

REACTIONS (7)
  - CEREBRAL ATROPHY [None]
  - DELIRIUM [None]
  - DELUSION [None]
  - DEMENTIA ALZHEIMER'S TYPE [None]
  - DIZZINESS [None]
  - MINI MENTAL STATUS EXAMINATION ABNORMAL [None]
  - SPEECH DISORDER [None]
